FAERS Safety Report 4553122-9 (Version None)
Quarter: 2005Q1

REPORT INFORMATION
  Report Type: 
  Country: None (occurrence: None)
  Receive Date: 20050114
  Receipt Date: 20050103
  Transmission Date: 20050727
  Serious: Yes (Hospitalization)
  Sender: FDA-Public Use
  Company Number: DE-JNJFOC-20041102550

PATIENT
  Sex: Male

DRUGS (6)
  1. HALDOL [Suspect]
     Indication: DRUG USE FOR UNKNOWN INDICATION
     Route: 049
  2. VALIUM [Suspect]
     Route: 049
  3. VALIUM [Suspect]
     Route: 049
  4. VALIUM [Suspect]
     Indication: DRUG USE FOR UNKNOWN INDICATION
     Route: 049
  5. AKINETON RET [Suspect]
     Indication: DRUG USE FOR UNKNOWN INDICATION
     Route: 049
  6. TAXILAN [Concomitant]
     Route: 049

REACTIONS (8)
  - ACIDOSIS [None]
  - BALANCE DISORDER [None]
  - DEPRESSED LEVEL OF CONSCIOUSNESS [None]
  - DRUG TOXICITY [None]
  - LETHARGY [None]
  - METABOLIC DISORDER [None]
  - PYREXIA [None]
  - SOPOR [None]
